FAERS Safety Report 5091508-7 (Version None)
Quarter: 2006Q3

REPORT INFORMATION
  Report Type: 
  Country: None (occurrence: None)
  Receive Date: 20060824
  Receipt Date: 20060821
  Transmission Date: 20061208
  Serious: Yes (Other)
  Sender: FDA-Public Use
  Company Number: 06IT000809

PATIENT
  Age: 52 Year
  Sex: Female

DRUGS (1)
  1. LITHIUM CARBONATE [Suspect]
     Indication: BIPOLAR I DISORDER
     Dosage: 600 MG, QD, ORAL
     Route: 048
     Dates: start: 20030101, end: 20030101

REACTIONS (8)
  - AUTOMATISM [None]
  - BRADYPHRENIA [None]
  - COORDINATION ABNORMAL [None]
  - DEPRESSED LEVEL OF CONSCIOUSNESS [None]
  - DISORIENTATION [None]
  - EXTRAPYRAMIDAL DISORDER [None]
  - SPEECH DISORDER DEVELOPMENTAL [None]
  - STATUS EPILEPTICUS [None]
